FAERS Safety Report 6408663-6 (Version None)
Quarter: 2009Q4

REPORT INFORMATION
  Report Type: 
  Country: None (occurrence: None)
  Receive Date: 20091021
  Receipt Date: 20091012
  Transmission Date: 20100525
  Serious: Yes (Hospitalization)
  Sender: FDA-Public Use
  Company Number: IL-PFIZER INC-2009281642

PATIENT
  Age: 68 Year

DRUGS (5)
  1. ATORVASTATIN CALCIUM [Suspect]
     Dosage: 20 MG, 1X/DAY
  2. DOXAZOSIN [Concomitant]
     Dosage: 2 MG, 1X/DAY
  3. ACETYLSALICYLIC ACID [Concomitant]
     Dosage: 100 MG, 1X/DAY
  4. ALLOPURINOL [Concomitant]
     Dosage: 100 MG, 1X/DAY
  5. DUTASTERIDE [Concomitant]
     Dosage: 0.5 MG, UNK

REACTIONS (2)
  - HEPATOTOXICITY [None]
  - JAUNDICE CHOLESTATIC [None]
